FAERS Safety Report 7162887-1 (Version None)
Quarter: 2010Q4

REPORT INFORMATION
  Report Type: 
  Country: None (occurrence: None)
  Receive Date: 20101215
  Receipt Date: 20100116
  Transmission Date: 20110411
  Serious: Yes (Other)
  Sender: FDA-Public Use
  Company Number: FI-PFIZER INC-2010006201

PATIENT
  Age: 34 Year
  Sex: Female

DRUGS (2)
  1. LYRICA [Suspect]
     Indication: GENERALISED ANXIETY DISORDER
     Dosage: 450 MG, UNK
     Dates: start: 20090101, end: 20100101
  2. QUETIAPINE FUMARATE [Concomitant]

REACTIONS (11)
  - AGITATION [None]
  - ANXIETY [None]
  - ARRHYTHMIA [None]
  - DEPRESSED LEVEL OF CONSCIOUSNESS [None]
  - DEREALISATION [None]
  - DIZZINESS [None]
  - HYPOAESTHESIA FACIAL [None]
  - MALAISE [None]
  - SENSATION OF HEAVINESS [None]
  - SPEECH DISORDER [None]
  - VIITH NERVE PARALYSIS [None]
